FAERS Safety Report 14834410 (Version 7)
Quarter: 2019Q4

REPORT INFORMATION
  Report Type: Spontaneous
  Country: US (occurrence: US)
  Receive Date: 20180501
  Receipt Date: 20191004
  Transmission Date: 20200122
  Serious: Yes (Other)
  Sender: FDA-Public Use
  Company Number: US-PFIZER INC-2018179814

PATIENT
  Age: 54 Year
  Sex: Female

DRUGS (69)
  1. PROTONIX [Suspect]
     Active Substance: PANTOPRAZOLE SODIUM
     Dosage: UNK
     Route: 065
     Dates: start: 1998, end: 2016
  2. DEXILANT [Suspect]
     Active Substance: DEXLANSOPRAZOLE
     Dosage: UNK
     Dates: start: 1999, end: 2017
  3. DEXILANT [Suspect]
     Active Substance: DEXLANSOPRAZOLE
     Dosage: 60 MG, 1X/DAY
     Dates: start: 20091015
  4. DEXILANT [Suspect]
     Active Substance: DEXLANSOPRAZOLE
     Dosage: 60 MG, UNK
     Route: 065
     Dates: start: 20151015
  5. DEXILANT [Suspect]
     Active Substance: DEXLANSOPRAZOLE
     Dosage: 60 MG, 1X/DAY
     Dates: start: 201510, end: 201708
  6. PREVACID [Suspect]
     Active Substance: LANSOPRAZOLE
     Dosage: UNK
     Dates: start: 1999, end: 2017
  7. OMEPRAZOLE. [Suspect]
     Active Substance: OMEPRAZOLE
     Dosage: UNK
     Dates: start: 20141215, end: 20150219
  8. ASPIRIN. [Concomitant]
     Active Substance: ASPIRIN
     Indication: CARDIOVASCULAR EVENT PROPHYLAXIS
     Dosage: 81 MG, UNK
     Dates: start: 2014
  9. LIPITOR [Concomitant]
     Active Substance: ATORVASTATIN CALCIUM
     Indication: BLOOD CHOLESTEROL INCREASED
     Dosage: UNK
     Dates: start: 2016, end: 2017
  10. ROLAIDS [Concomitant]
     Active Substance: CALCIUM CARBONATE\MAGNESIUM HYDROXIDE
     Dosage: UNK
     Dates: start: 1999, end: 2015
  11. NEXIUM [Suspect]
     Active Substance: ESOMEPRAZOLE MAGNESIUM
     Indication: GASTROOESOPHAGEAL REFLUX DISEASE
     Dosage: UNK
     Route: 048
     Dates: start: 1998, end: 2016
  12. NEXIUM [Suspect]
     Active Substance: ESOMEPRAZOLE MAGNESIUM
     Dosage: 40 MG, 1X/DAY
     Dates: start: 20080912, end: 201005
  13. VIMOVO [Suspect]
     Active Substance: ESOMEPRAZOLE MAGNESIUM\NAPROXEN
     Dosage: UNK
     Route: 048
     Dates: start: 1998, end: 2016
  14. DEXILANT [Suspect]
     Active Substance: DEXLANSOPRAZOLE
     Dosage: 60 MG, 1X/DAY
     Dates: start: 201710, end: 201711
  15. PREVACID [Suspect]
     Active Substance: LANSOPRAZOLE
     Indication: GASTROOESOPHAGEAL REFLUX DISEASE
     Dosage: UNK
     Route: 065
     Dates: start: 20080729
  16. ASPIRIN. [Concomitant]
     Active Substance: ASPIRIN
     Dosage: 81 MG, UNK
     Dates: start: 20160126, end: 20170110
  17. LANTUS [Concomitant]
     Active Substance: INSULIN GLARGINE
     Dosage: UNK
     Dates: start: 2007, end: 2015
  18. ACTOS [Concomitant]
     Active Substance: PIOGLITAZONE HYDROCHLORIDE
     Indication: DIABETES MELLITUS
     Dosage: UNK
     Dates: start: 2007, end: 2007
  19. METOPROLOL. [Concomitant]
     Active Substance: METOPROLOL
     Indication: BLOOD PRESSURE ABNORMAL
     Dosage: UNK
     Dates: start: 2016
  20. NEXIUM [Suspect]
     Active Substance: ESOMEPRAZOLE MAGNESIUM
     Dosage: UNK
     Dates: start: 20080912, end: 20100305
  21. DEXILANT [Suspect]
     Active Substance: DEXLANSOPRAZOLE
     Dosage: UNK
     Route: 065
     Dates: start: 1999, end: 2007
  22. DEXILANT [Suspect]
     Active Substance: DEXLANSOPRAZOLE
     Dosage: 60 MG, 1X/DAY
     Dates: start: 201102, end: 201510
  23. PREVACID [Suspect]
     Active Substance: LANSOPRAZOLE
     Indication: GASTROOESOPHAGEAL REFLUX DISEASE
     Dosage: UNK
     Route: 065
     Dates: start: 1998, end: 2016
  24. PREVACID [Suspect]
     Active Substance: LANSOPRAZOLE
     Dosage: 30 MG, 1X/DAY
     Dates: start: 20071019, end: 20080829
  25. FERROUS SULFATE. [Concomitant]
     Active Substance: FERROUS SULFATE
     Indication: MINERAL SUPPLEMENTATION
     Dosage: UNK
     Dates: start: 2009
  26. FLOVENT [Concomitant]
     Active Substance: FLUTICASONE PROPIONATE
     Dosage: UNK
  27. SIMVASTATIN. [Concomitant]
     Active Substance: SIMVASTATIN
     Indication: BLOOD CHOLESTEROL INCREASED
     Dosage: UNK
     Dates: start: 2014, end: 2017
  28. BACLOFEN. [Concomitant]
     Active Substance: BACLOFEN
     Dosage: UNK
  29. RANITIDINE. [Concomitant]
     Active Substance: RANITIDINE
     Dosage: UNK
     Dates: start: 2009, end: 2010
  30. HUMALOG [Concomitant]
     Active Substance: INSULIN LISPRO
     Indication: DIABETES MELLITUS
     Dosage: UNK
     Dates: start: 2014
  31. NORVASC [Concomitant]
     Active Substance: AMLODIPINE BESYLATE
     Indication: HYPERTENSION
     Dosage: UNK
     Dates: start: 2016, end: 2017
  32. NEXIUM [Suspect]
     Active Substance: ESOMEPRAZOLE MAGNESIUM
     Indication: GASTROOESOPHAGEAL REFLUX DISEASE
     Dosage: 40 MG, 1X/DAY
     Route: 048
     Dates: start: 20080912
  33. DEXILANT [Suspect]
     Active Substance: DEXLANSOPRAZOLE
     Indication: GASTROOESOPHAGEAL REFLUX DISEASE
     Dosage: 60 MG, 1X/DAY
     Route: 048
     Dates: start: 20160511
  34. PREVACID 24 HR [Suspect]
     Active Substance: LANSOPRAZOLE
     Dosage: UNK
     Route: 065
     Dates: start: 1998, end: 2016
  35. AMLODIPINE [Concomitant]
     Active Substance: AMLODIPINE BESYLATE
     Indication: BLOOD PRESSURE MEASUREMENT
     Dosage: UNK
     Dates: start: 2014
  36. LOSARTAN. [Concomitant]
     Active Substance: LOSARTAN
     Indication: BLOOD PRESSURE ABNORMAL
     Dosage: UNK
     Dates: start: 2014
  37. METOPROLOL TARTRATE. [Concomitant]
     Active Substance: METOPROLOL TARTRATE
     Dosage: UNK
  38. LASIX [Concomitant]
     Active Substance: FUROSEMIDE
     Indication: OEDEMA
     Dosage: UNK
     Dates: start: 2016, end: 2017
  39. LANTUS [Concomitant]
     Active Substance: INSULIN GLARGINE
     Indication: DIABETES MELLITUS
     Dosage: UNK
     Dates: start: 2004
  40. COZAAR [Concomitant]
     Active Substance: LOSARTAN POTASSIUM
     Indication: HYPERTENSION
     Dosage: UNK
     Dates: start: 2015, end: 2017
  41. TUMS [Concomitant]
     Active Substance: CALCIUM CARBONATE
     Dosage: UNK
     Dates: start: 1999, end: 2015
  42. PEPTO-BISMOL [Concomitant]
     Active Substance: BISMUTH SUBSALICYLATE
     Indication: ANTACID THERAPY
     Dosage: UNK
     Dates: start: 1997, end: 1999
  43. NEXIUM 24HR [Suspect]
     Active Substance: ESOMEPRAZOLE MAGNESIUM
     Dosage: UNK
     Route: 048
     Dates: end: 2016
  44. DEXILANT [Suspect]
     Active Substance: DEXLANSOPRAZOLE
     Indication: GASTROOESOPHAGEAL REFLUX DISEASE
     Dosage: UNK
     Route: 065
     Dates: start: 1998, end: 2016
  45. PREVACID [Suspect]
     Active Substance: LANSOPRAZOLE
     Dosage: 15 MG, 1X/DAY
     Dates: start: 1999, end: 2007
  46. PRILOSEC [Suspect]
     Active Substance: OMEPRAZOLE MAGNESIUM
     Indication: GASTROOESOPHAGEAL REFLUX DISEASE
     Dosage: UNK
     Route: 048
     Dates: start: 1998, end: 2016
  47. OMEPRAZOLE. [Suspect]
     Active Substance: OMEPRAZOLE
     Indication: GASTROOESOPHAGEAL REFLUX DISEASE
     Dosage: 40 MG, 1X/DAY
     Dates: start: 20141215, end: 201503
  48. CRESTOR [Concomitant]
     Active Substance: ROSUVASTATIN CALCIUM
     Indication: BLOOD CHOLESTEROL INCREASED
     Dosage: UNK
     Dates: start: 2007
  49. LOPRESSOR [Concomitant]
     Active Substance: METOPROLOL TARTRATE
     Indication: BLOOD PRESSURE ABNORMAL
     Dosage: UNK
     Dates: start: 2015, end: 2017
  50. VITAMIN D [Concomitant]
     Active Substance: VITAMIN D NOS
     Dosage: UNK
  51. ROLAIDS [Concomitant]
     Active Substance: CALCIUM CARBONATE\MAGNESIUM HYDROXIDE
     Indication: ANTACID THERAPY
     Dosage: UNK
     Dates: start: 1997, end: 1999
  52. PEPTO-BISMOL [Concomitant]
     Active Substance: BISMUTH SUBSALICYLATE
     Dosage: UNK
     Dates: start: 1999, end: 2015
  53. PREVACID [Suspect]
     Active Substance: LANSOPRAZOLE
     Dosage: UNK
     Dates: start: 19991215, end: 20080729
  54. PRILOSEC OTC [Suspect]
     Active Substance: OMEPRAZOLE MAGNESIUM
     Dosage: UNK
     Route: 048
     Dates: start: 1998, end: 2016
  55. ACIPHEX [Suspect]
     Active Substance: RABEPRAZOLE SODIUM
     Dosage: UNK
     Route: 065
     Dates: start: 1998, end: 2016
  56. HUMALOG [Concomitant]
     Active Substance: INSULIN LISPRO
     Dosage: UNK
     Dates: start: 2016, end: 2017
  57. FUROSEMIDE. [Concomitant]
     Active Substance: FUROSEMIDE
     Indication: FLUID RETENTION
     Dosage: UNK
     Dates: start: 2014
  58. TRADJENTA [Concomitant]
     Active Substance: LINAGLIPTIN
     Indication: DIABETES MELLITUS
     Dosage: UNK
     Dates: start: 2014
  59. TUMS [Concomitant]
     Active Substance: CALCIUM CARBONATE
     Indication: ANTACID THERAPY
     Dosage: UNK
     Dates: start: 1997, end: 1999
  60. DEXILANT [Suspect]
     Active Substance: DEXLANSOPRAZOLE
     Dosage: 30 MG, 1X/DAY
     Dates: start: 201005, end: 201101
  61. PRILOSEC [Suspect]
     Active Substance: OMEPRAZOLE MAGNESIUM
     Dosage: UNK
     Route: 048
     Dates: start: 1999, end: 2007
  62. PRILOSEC [Suspect]
     Active Substance: OMEPRAZOLE MAGNESIUM
     Dosage: UNK
     Dates: start: 1999, end: 2017
  63. MIRAPEX [Concomitant]
     Active Substance: PRAMIPEXOLE DIHYDROCHLORIDE
     Dosage: UNK
  64. NEXIUM [Suspect]
     Active Substance: ESOMEPRAZOLE MAGNESIUM
     Dosage: UNK
     Route: 048
     Dates: start: 1999, end: 2007
  65. NEXIUM [Suspect]
     Active Substance: ESOMEPRAZOLE MAGNESIUM
     Dosage: UNK
     Dates: start: 1999, end: 2017
  66. DEXILANT [Suspect]
     Active Substance: DEXLANSOPRAZOLE
     Dosage: UNK
     Dates: start: 20151015
  67. PRILOSEC [Suspect]
     Active Substance: OMEPRAZOLE MAGNESIUM
     Dosage: UNK
     Route: 065
     Dates: start: 20141215
  68. GLYBURIDE. [Concomitant]
     Active Substance: GLYBURIDE
     Dosage: UNK
  69. LOPRESSOR [Concomitant]
     Active Substance: METOPROLOL TARTRATE
     Indication: HYPERTENSION
     Dosage: UNK
     Dates: start: 2014

REACTIONS (1)
  - Chronic kidney disease [Not Recovered/Not Resolved]

NARRATIVE: CASE EVENT DATE: 20160511
